FAERS Safety Report 25494439 (Version 1)
Quarter: 2025Q2

REPORT INFORMATION
  Report Type: Spontaneous
  Country: US (occurrence: US)
  Receive Date: 20250630
  Receipt Date: 20250630
  Transmission Date: 20250716
  Serious: Yes (Hospitalization, Other)
  Sender: TORRENT PHARMA INC.
  Company Number: US-MLMSERVICE-20250619-PI545402-00330-1

PATIENT
  Age: 16 Year
  Sex: Female

DRUGS (6)
  1. DULOXETINE [Interacting]
     Active Substance: DULOXETINE
     Indication: Depression
     Dosage: REDUCED TO 30 MG DAILY (FROM 60 MG DAILY) WITH THE INTENT TO TITRATE OFF THE DULOXETINE OVER 1WEEK.
     Route: 065
  2. VENLAFAXINE HYDROCHLORIDE [Interacting]
     Active Substance: VENLAFAXINE HYDROCHLORIDE
     Indication: Depression
     Route: 065
  3. ARIPIPRAZOLE [Concomitant]
     Active Substance: ARIPIPRAZOLE
     Indication: Product used for unknown indication
     Route: 065
  4. Ethinyl Estradiol /Norethindrone [Concomitant]
     Indication: Product used for unknown indication
     Dosage: ETHINYL ESTRADIOL 0.03 MG/NORETHINDRONE 1.5 MG DAILY
     Route: 065
  5. Guaifenesin, Dextromethorphan/ Phenylephrine [Concomitant]
     Indication: Cough
     Route: 065
  6. ZOLPIDEM [Concomitant]
     Active Substance: ZOLPIDEM TARTRATE
     Indication: Product used for unknown indication
     Route: 065

REACTIONS (2)
  - Serotonin syndrome [Recovered/Resolved]
  - Drug interaction [Recovered/Resolved]
